FAERS Safety Report 16896198 (Version 1)
Quarter: 2019Q4

REPORT INFORMATION
  Report Type: Report from Study
  Country: US (occurrence: US)
  Receive Date: 20191008
  Receipt Date: 20191008
  Transmission Date: 20200122
  Serious: Yes (Hospitalization, Other)
  Sender: FDA-Public Use
  Company Number: US-CELGENEUS-USA-20191001593

PATIENT
  Age: 84 Year
  Sex: Male
  Weight: 90.62 kg

DRUGS (1)
  1. AZACITIDINE. [Suspect]
     Active Substance: AZACITIDINE
     Indication: MYELODYSPLASTIC SYNDROME
     Dosage: 159 MILLIGRAM
     Route: 058
     Dates: start: 20190408, end: 20190412

REACTIONS (3)
  - Rib fracture [Recovered/Resolved]
  - Pancytopenia [Unknown]
  - Fall [Recovered/Resolved]

NARRATIVE: CASE EVENT DATE: 20190412
